FAERS Safety Report 23790012 (Version 1)
Quarter: 2024Q2

REPORT INFORMATION
  Report Type: Spontaneous
  Country: US (occurrence: US)
  Receive Date: 20240426
  Receipt Date: 20240426
  Transmission Date: 20240716
  Serious: Yes (Other)
  Sender: FDA-Public Use
  Company Number: US-MALLINCKRODT-MNK202402738

PATIENT
  Age: 40 Year
  Sex: Male
  Weight: 101 kg

DRUGS (4)
  1. UVADEX [Suspect]
     Active Substance: METHOXSALEN
     Indication: Heart transplant rejection
     Route: 050
     Dates: start: 20240122
  2. HEPARIN [Concomitant]
     Active Substance: HEPARIN SODIUM
     Indication: Anticoagulant therapy
     Dosage: 15,000U IN 500ML NSS (A/C RATIO: 8:1)
  3. MAGNESIUM [Concomitant]
     Active Substance: MAGNESIUM
     Dosage: UNKNOWN
  4. POTASSIUM [Concomitant]
     Active Substance: POTASSIUM
     Dosage: UNKNOWN

REACTIONS (3)
  - Supraventricular tachycardia [Recovered/Resolved]
  - Headache [Recovered/Resolved]
  - Product use in unapproved indication [Unknown]

NARRATIVE: CASE EVENT DATE: 20240122
